FAERS Safety Report 14586797 (Version 3)
Quarter: 2018Q1

REPORT INFORMATION
  Report Type: Report from Study
  Country: JP (occurrence: JP)
  Receive Date: 20180301
  Receipt Date: 20180316
  Transmission Date: 20180509
  Serious: Yes (Death)
  Sender: FDA-Public Use
  Company Number: JP-PFIZER INC-2018085902

PATIENT
  Age: 51 Year
  Sex: Male
  Weight: 65 kg

DRUGS (6)
  1. HEPARIN SODIUM. [Suspect]
     Active Substance: HEPARIN SODIUM
     Indication: PROPHYLAXIS
     Dosage: 2000 UNITS/HR
     Route: 042
     Dates: start: 20180220, end: 20180224
  2. CEFTRIAXONE SODIUM. [Suspect]
     Active Substance: CEFTRIAXONE SODIUM
     Indication: PNEUMONIA
     Dosage: 2 G, DAILY (2 G/24HR)
     Route: 041
     Dates: start: 20180220, end: 20180224
  3. BLINDED THERAPY [Suspect]
     Active Substance: INVESTIGATIONAL PRODUCT
     Indication: ACUTE RESPIRATORY DISTRESS SYNDROME
     Dosage: 11.2 MCG + DISTILLED WATER 1 ML (1 IN 1 DAY, SCHEDULED TO BE ADMINISTERED FOR 6 DAYS)
     Route: 042
     Dates: start: 20180222, end: 20180224
  4. PRECEDEX [Suspect]
     Active Substance: DEXMEDETOMIDINE HYDROCHLORIDE
     Indication: SEDATION
     Dosage: 0.3 - 0.6 MCG/KG/HR
     Route: 042
     Dates: start: 20180220, end: 20180224
  5. VANCOMYCIN HCL [Suspect]
     Active Substance: VANCOMYCIN HYDROCHLORIDE
     Indication: PNEUMONIA
     Dosage: 0.5 G, 2X/DAY (0.5 G/12HR)
     Route: 041
     Dates: start: 20180220, end: 20180224
  6. ZITHROMAC [Suspect]
     Active Substance: AZITHROMYCIN DIHYDRATE
     Indication: PNEUMONIA
     Dosage: 500 MG, DAILY (500 MG/24HR)
     Route: 041
     Dates: start: 20180220, end: 20180224

REACTIONS (1)
  - Shock [Fatal]

NARRATIVE: CASE EVENT DATE: 20180224
